FAERS Safety Report 23218572 (Version 1)
Quarter: 2023Q4

REPORT INFORMATION
  Report Type: Spontaneous
  Country: US (occurrence: None)
  Receive Date: 20231122
  Receipt Date: 20231122
  Transmission Date: 20240110
  Serious: Yes (Death, Hospitalization)
  Sender: FDA-Public Use
  Company Number: None

PATIENT
  Age: 67 Year
  Sex: Female
  Weight: 81.6 kg

DRUGS (3)
  1. DOCETAXEL [Suspect]
     Active Substance: DOCETAXEL\DOCETAXEL ANHYDROUS
     Dates: end: 20211008
  2. PERTUZUMAB [Suspect]
     Active Substance: PERTUZUMAB
     Dates: end: 20211008
  3. TRASTUZUMAB [Suspect]
     Active Substance: TRASTUZUMAB
     Dates: end: 20211008

REACTIONS (5)
  - COVID-19 [None]
  - Haematuria [None]
  - Unresponsive to stimuli [None]
  - Cardiac arrest [None]
  - Cardiac arrest [None]

NARRATIVE: CASE EVENT DATE: 20211203
